FAERS Safety Report 25036990 (Version 1)
Quarter: 2025Q1

REPORT INFORMATION
  Report Type: Spontaneous
  Country: CN (occurrence: CN)
  Receive Date: 20250304
  Receipt Date: 20250304
  Transmission Date: 20250408
  Serious: Yes (Hospitalization)
  Sender: PFIZER
  Company Number: CN-PFIZER INC-PV202500025111

PATIENT
  Age: 51 Year
  Sex: Female
  Weight: 57 kg

DRUGS (6)
  1. ZYVOX [Suspect]
     Active Substance: LINEZOLID
     Indication: Colon cancer
     Dosage: 0.6 G, 1X/DAY
     Route: 048
     Dates: start: 20250117, end: 20250225
  2. ZYVOX [Suspect]
     Active Substance: LINEZOLID
     Indication: Rectal cancer
  3. ZYVOX [Suspect]
     Active Substance: LINEZOLID
     Indication: Pulmonary tuberculosis
  4. ISONIAZID [Concomitant]
     Active Substance: ISONIAZID
     Indication: Colon cancer
     Dosage: 0.3 G, 1X/DAY
     Route: 048
     Dates: start: 20250117, end: 20250226
  5. ISONIAZID [Concomitant]
     Active Substance: ISONIAZID
     Indication: Rectal cancer
  6. ISONIAZID [Concomitant]
     Active Substance: ISONIAZID
     Indication: Pulmonary tuberculosis

REACTIONS (4)
  - Myelosuppression [Unknown]
  - Asthenia [Unknown]
  - Hypoaesthesia [Unknown]
  - Off label use [Unknown]

NARRATIVE: CASE EVENT DATE: 20250117
